FAERS Safety Report 9745011 (Version 3)
Quarter: 2014Q1

REPORT INFORMATION
  Report Type: Report from Study
  Country: US (occurrence: US)
  Receive Date: 20131211
  Receipt Date: 20140203
  Transmission Date: 20141002
  Serious: Yes (Hospitalization, Other)
  Sender: FDA-Public Use
  Company Number: US-PFIZER INC-2011242090

PATIENT
  Age: 88 Year
  Sex: Female
  Weight: 40.82 kg

DRUGS (6)
  1. LYRICA [Suspect]
     Indication: HERPES ZOSTER
     Dosage: UNK
     Route: 048
  2. LYRICA [Suspect]
     Indication: NERVOUS SYSTEM DISORDER
  3. LYRICA [Suspect]
     Indication: NEURALGIA
  4. LYRICA [Suspect]
     Indication: ARTHRALGIA
  5. NORVASC [Suspect]
     Indication: HYPERTENSION
     Dosage: 5 MG, 1X/DAY
     Route: 048
  6. NORVASC [Suspect]
     Dosage: UNK

REACTIONS (9)
  - Epistaxis [Unknown]
  - Hip fracture [Unknown]
  - Ophthalmic herpes zoster [Unknown]
  - Blindness unilateral [Unknown]
  - Herpes zoster [Unknown]
  - Eye disorder [Unknown]
  - Pain [Unknown]
  - Malaise [Unknown]
  - Vision blurred [Unknown]
